FAERS Safety Report 9693110 (Version 3)
Quarter: 2014Q1

REPORT INFORMATION
  Report Type: Spontaneous
  Country: DE (occurrence: DE)
  Receive Date: 20131118
  Receipt Date: 20140205
  Transmission Date: 20141002
  Serious: Yes (Hospitalization, Other)
  Sender: FDA-Public Use
  Company Number: DE-ELI_LILLY_AND_COMPANY-DE201311002036

PATIENT
  Age: 77 Year
  Sex: Female

DRUGS (15)
  1. ZYPREXA [Suspect]
     Indication: MAJOR DEPRESSION
     Dosage: 5 MG, UNKNOWN
     Route: 048
     Dates: start: 20130525, end: 20130529
  2. ZYPREXA [Interacting]
     Dosage: 7.5 MG, UNKNOWN
     Route: 048
     Dates: start: 20130530
  3. TREVILOR [Interacting]
     Indication: PRODUCT USED FOR UNKNOWN INDICATION
     Dosage: 37.5 MG, UNKNOWN
     Route: 065
     Dates: end: 20130527
  4. TAVOR [Interacting]
     Indication: PRODUCT USED FOR UNKNOWN INDICATION
     Dosage: 2.5 MG, UNKNOWN
     Route: 065
     Dates: start: 20130527, end: 20130527
  5. TAVOR [Interacting]
     Dosage: 1 MG, UNKNOWN
     Route: 065
     Dates: start: 20130528, end: 20130530
  6. TAVOR [Interacting]
     Dosage: 1.5 MG, UNKNOWN
     Route: 065
     Dates: start: 20130531
  7. VALDOXAN [Interacting]
     Indication: SLEEP DISORDER
     Dosage: 25 MG, UNKNOWN
     Route: 065
     Dates: start: 20130527
  8. BISOPROLOL [Concomitant]
     Indication: PRODUCT USED FOR UNKNOWN INDICATION
     Dosage: 7.5 MG, UNKNOWN
     Route: 065
  9. MAGNESIUM CARBONATE [Concomitant]
     Indication: PRODUCT USED FOR UNKNOWN INDICATION
     Dosage: 2 DF, UNKNOWN
     Route: 065
  10. ASS [Concomitant]
     Indication: PRODUCT USED FOR UNKNOWN INDICATION
     Dosage: 100 MG, UNKNOWN
     Route: 065
  11. SIMVASTATINE [Concomitant]
     Indication: PRODUCT USED FOR UNKNOWN INDICATION
     Dosage: 1 DF, UNKNOWN
     Route: 065
  12. ZOPICLON [Concomitant]
     Indication: PRODUCT USED FOR UNKNOWN INDICATION
     Dosage: 7.5 MG, UNKNOWN
     Route: 065
     Dates: start: 20130530
  13. SERTRALIN [Concomitant]
     Indication: PRODUCT USED FOR UNKNOWN INDICATION
     Dosage: 25 MG, EACH MORNING
     Route: 065
  14. SERTRALIN [Concomitant]
     Dosage: 50 MG, UNKNOWN
  15. PIPAMPERON [Concomitant]
     Dosage: 40 MG, UNKNOWN

REACTIONS (11)
  - Delirium [Recovered/Resolved]
  - Cerebral infarction [Recovered/Resolved]
  - Gait disturbance [Recovered/Resolved]
  - Balance disorder [Recovered/Resolved]
  - Dysarthria [Recovered/Resolved]
  - Sedation [Recovered/Resolved]
  - Restlessness [Recovered/Resolved]
  - Blood glucose increased [Recovered/Resolved]
  - Somnolence [Recovered/Resolved]
  - Amnesia [Unknown]
  - Drug interaction [Unknown]
